FAERS Safety Report 7906813-3 (Version None)
Quarter: 2011Q4

REPORT INFORMATION
  Report Type: 
  Country: None (occurrence: None)
  Receive Date: 20111110
  Receipt Date: 20111107
  Transmission Date: 20120403
  Serious: Yes (Other)
  Sender: FDA-Public Use
  Company Number: GR-BRISTOL-MYERS SQUIBB COMPANY-15807936

PATIENT
  Age: 70 Year
  Sex: Female

DRUGS (7)
  1. ONGLYZA [Suspect]
     Indication: TYPE 2 DIABETES MELLITUS
     Dosage: DURATION 7-8MONTHS,1 TAB
     Route: 048
     Dates: start: 20101101
  2. XANAX [Concomitant]
     Indication: ANXIETY
     Dosage: TABS
  3. NEBIVOLOL HCL [Suspect]
     Indication: HYPERTENSION
     Dosage: 1DF=1 TABLET LOBINON PLUS FC TAB (5MG+25MG)/TAB,
  4. EZETIMIBE [Concomitant]
     Indication: BLOOD CHOLESTEROL
     Dosage: 1DF=INEGY 10/20 TABS
  5. PERINDOPRIL ARGININE + AMLODIPINE BESILATE [Suspect]
     Indication: HYPERTENSION
     Dosage: 1DF=COVERAM TAB (10+10) MG/TAB
  6. SOLOSA [Concomitant]
     Indication: TYPE 2 DIABETES MELLITUS
     Dosage: TABS
  7. GLICLAZIDE [Concomitant]
     Indication: TYPE 2 DIABETES MELLITUS

REACTIONS (3)
  - ALBUMINURIA [None]
  - HYPERSENSITIVITY [None]
  - FACE OEDEMA [None]
